FAERS Safety Report 22751341 (Version 2)
Quarter: 2023Q4

REPORT INFORMATION
  Report Type: Report from Study
  Country: US (occurrence: US)
  Receive Date: 20230726
  Receipt Date: 20231207
  Transmission Date: 20240109
  Serious: Yes (Other)
  Sender: FDA-Public Use
  Company Number: US-UCBSA-2023021515

PATIENT
  Sex: Female

DRUGS (1)
  1. CERTOLIZUMAB PEGOL [Suspect]
     Active Substance: CERTOLIZUMAB PEGOL
     Indication: Psoriasis
     Dosage: 400 MILLIGRAM, EV 2 WEEKS(QOW)
     Dates: start: 20230330, end: 2023

REACTIONS (8)
  - Glaucoma [Not Recovered/Not Resolved]
  - Intraocular pressure increased [Not Recovered/Not Resolved]
  - Psoriasis [Recovered/Resolved]
  - Gastroenteritis viral [Recovered/Resolved]
  - Myalgia [Recovered/Resolved]
  - Vision blurred [Not Recovered/Not Resolved]
  - Dehydration [Unknown]
  - Inappropriate schedule of product administration [Unknown]

NARRATIVE: CASE EVENT DATE: 20230101
